FAERS Safety Report 20314143 (Version 1)
Quarter: 2022Q1

REPORT INFORMATION
  Report Type: Spontaneous
  Country: US (occurrence: US)
  Receive Date: 20220109
  Receipt Date: 20220109
  Transmission Date: 20220423
  Serious: No
  Sender: FDA-Public Use
  Company Number: US-SA-SAC20220103001228

PATIENT
  Age: 25 Year
  Sex: Male

DRUGS (2)
  1. DUPIXENT [Suspect]
     Active Substance: DUPILUMAB
     Indication: Eczema
     Dosage: 300 MG, QOW
     Route: 058
  2. XIIDRA [Concomitant]
     Active Substance: LIFITEGRAST
     Indication: Conjunctivitis
     Dosage: UNK

REACTIONS (2)
  - Conjunctivitis [Recovering/Resolving]
  - Dry eye [Not Recovered/Not Resolved]
